FAERS Safety Report 6682301-X (Version None)
Quarter: 2010Q2

REPORT INFORMATION
  Report Type: 
  Country: None (occurrence: None)
  Receive Date: 20100415
  Receipt Date: 20100412
  Transmission Date: 20101027
  Serious: Yes (Death, Hospitalization)
  Sender: FDA-Public Use
  Company Number: US-ASTRAZENECA-2009SE15073

PATIENT
  Age: 10908 Day
  Sex: Female

DRUGS (4)
  1. SEROQUEL [Suspect]
     Route: 048
     Dates: start: 20080101
  2. CYMBALTA [Concomitant]
     Route: 048
     Dates: start: 20080403
  3. LITHIUM [Concomitant]
     Route: 048
     Dates: start: 20080403
  4. PROPRANOLOL [Concomitant]
     Route: 048
     Dates: start: 20080403

REACTIONS (4)
  - DEATH [None]
  - DIABETES MELLITUS [None]
  - OVERDOSE [None]
  - SUICIDE ATTEMPT [None]
